FAERS Safety Report 9209116 (Version 1)
Quarter: 2013Q2

REPORT INFORMATION
  Report Type: Spontaneous
  Country: US (occurrence: None)
  Receive Date: 20130403
  Receipt Date: 20130403
  Transmission Date: 20140414
  Serious: Yes (Death)
  Sender: FDA-Public Use
  Company Number: None

PATIENT
  Age: 31 Year
  Sex: Male
  Weight: 46.9 kg

DRUGS (1)
  1. TGYRODUCT LABEL) CRIZOTINIB?MG PFIZER [Suspect]
     Route: 048
     Dates: start: 20130312, end: 20130316

REACTIONS (7)
  - Pyrexia [None]
  - Cough [None]
  - Dyspnoea [None]
  - Chills [None]
  - Pleural effusion [None]
  - Respiratory disorder [None]
  - Infection [None]
